FAERS Safety Report 11598270 (Version 1)
Quarter: 2015Q3

REPORT INFORMATION
  Report Type: Spontaneous
  Country: US (occurrence: US)
  Receive Date: 20150916
  Receipt Date: 20150916
  Transmission Date: 20151125
  Serious: No
  Sender: FDA-Public Use
  Company Number: US-ELI_LILLY_AND_COMPANY-US200712004935

PATIENT
  Age: 85 Year
  Sex: Female

DRUGS (4)
  1. DIGITEK [Concomitant]
     Active Substance: DIGOXIN
     Dosage: UNK D/F, UNKNOWN
  2. FORTEO [Suspect]
     Active Substance: TERIPARATIDE
     Indication: OSTEOPOROSIS
     Dosage: UNK D/F, UNKNOWN
     Dates: start: 20071215, end: 20071224
  3. CALTRATE [Concomitant]
     Active Substance: CALCIUM CARBONATE
     Dosage: 600 MG, UNKNOWN
  4. MVI [Concomitant]
     Active Substance: VITAMINS
     Dosage: UNK D/F, UNKNOWN

REACTIONS (6)
  - Muscle spasms [Not Recovered/Not Resolved]
  - Pain in extremity [Not Recovered/Not Resolved]
  - Nausea [Recovered/Resolved]
  - Pain in extremity [Not Recovered/Not Resolved]
  - Malaise [Recovered/Resolved]
  - Pain in extremity [Recovered/Resolved]

NARRATIVE: CASE EVENT DATE: 200712
